FAERS Safety Report 23457328 (Version 2)
Quarter: 2025Q1

REPORT INFORMATION
  Report Type: Spontaneous
  Country: CN (occurrence: CN)
  Receive Date: 20240130
  Receipt Date: 20250328
  Transmission Date: 20250409
  Serious: Yes (Other)
  Sender: TEVA
  Company Number: CN-TEVA-VS-3150022

PATIENT
  Sex: Female

DRUGS (4)
  1. EPIRUBICIN [Suspect]
     Active Substance: EPIRUBICIN
     Indication: Follicular dendritic cell sarcoma
     Route: 065
     Dates: start: 20211012
  2. SINTILIMAB [Suspect]
     Active Substance: SINTILIMAB
     Indication: Follicular dendritic cell sarcoma
     Dosage: RECEIVED 8 CYCLES
     Route: 065
     Dates: start: 20211012
  3. SINTILIMAB [Suspect]
     Active Substance: SINTILIMAB
     Indication: Follicular dendritic cell sarcoma
     Dosage: RECEIVED MAINTENANCE MONOTHERAPY
     Route: 065
  4. IFOSFAMIDE [Suspect]
     Active Substance: IFOSFAMIDE
     Indication: Follicular dendritic cell sarcoma
     Dosage: RECEIVED 8 CYCLES
     Route: 065
     Dates: start: 20211012

REACTIONS (2)
  - Leukopenia [Unknown]
  - Hypothyroidism [Unknown]
